FAERS Safety Report 17134878 (Version 2)
Quarter: 2020Q1

REPORT INFORMATION
  Report Type: Spontaneous
  Country: US (occurrence: US)
  Receive Date: 20191210
  Receipt Date: 20200128
  Transmission Date: 20200409
  Serious: No
  Sender: FDA-Public Use
  Company Number: US-VERTEX PHARMACEUTICALS-2019-012406

PATIENT
  Age: 5 Year
  Sex: Male
  Weight: 21 kg

DRUGS (5)
  1. KALYDECO [Suspect]
     Active Substance: IVACAFTOR
     Indication: CYSTIC FIBROSIS
     Dosage: 75 MILLIGRAM, BID
     Route: 048
     Dates: start: 201607
  2. SODIUM CHLORIDE. [Concomitant]
     Active Substance: SODIUM CHLORIDE
     Dosage: 150 MILLILITER
     Route: 055
     Dates: start: 20191217, end: 20200116
  3. PANCREAZE [Concomitant]
     Active Substance: PANCRELIPASE AMYLASE\PANCRELIPASE LIPASE\PANCRELIPASE PROTEASE
     Dosage: 6 CAPSULES WITH MEALSAND 3 WITH SNACKS
     Dates: start: 20200108
  4. PULMOZYME [Concomitant]
     Active Substance: DORNASE ALFA
     Dosage: 75 MILLILITER, QD
     Route: 055
     Dates: start: 20191217, end: 20200116
  5. ALBUTEROL [SALBUTAMOL] [Concomitant]
     Active Substance: ALBUTEROL
     Dosage: 2-4 PUFFS EVERY 4 HOURS AS NEEDED
     Dates: start: 20180717

REACTIONS (1)
  - Ear infection [Not Recovered/Not Resolved]

NARRATIVE: CASE EVENT DATE: 20191204
